FAERS Safety Report 19362168 (Version 2)
Quarter: 2021Q2

REPORT INFORMATION
  Report Type: Spontaneous
  Country: US (occurrence: US)
  Receive Date: 20210601
  Receipt Date: 20210616
  Transmission Date: 20210717
  Serious: No
  Sender: FDA-Public Use
  Company Number: US-IGSA-BIG0014597

PATIENT
  Age: 48 Year
  Sex: Male
  Weight: 93 kg

DRUGS (27)
  1. PERCOCET [OXYCODONE HYDROCHLORIDE;OXYCODONE TEREPHTHALATE;PARACETAMOL] [Concomitant]
     Active Substance: ACETAMINOPHEN\OXYCODONE HYDROCHLORIDE\OXYCODONE TEREPHTHALATE
  2. FISH OIL [Concomitant]
     Active Substance: FISH OIL
  3. GAMUNEX?C [Suspect]
     Active Substance: HUMAN IMMUNOGLOBULIN G
     Dosage: 10 GRAM
     Route: 042
     Dates: start: 20210416
  4. ACETAMINOPHEN. [Concomitant]
     Active Substance: ACETAMINOPHEN
     Dosage: 650 MILLIGRAM
     Route: 048
     Dates: start: 20210416
  5. BIOTIN [Concomitant]
     Active Substance: BIOTIN
  6. TUMERIC [Concomitant]
     Active Substance: HERBALS\TURMERIC
  7. GAMUNEX?C [Suspect]
     Active Substance: HUMAN IMMUNOGLOBULIN G
     Dosage: 20 GRAM, Q.4WK.
     Route: 042
     Dates: start: 20210416
  8. GAMUNEX?C [Suspect]
     Active Substance: HUMAN IMMUNOGLOBULIN G
     Indication: MYOPATHY
     Dosage: 35 UNK
     Route: 042
  9. DIPHENHYDRAMINE. [Concomitant]
     Active Substance: DIPHENHYDRAMINE
     Indication: PREMEDICATION
     Dosage: 25 MILLIGRAM
     Route: 048
     Dates: start: 20210514
  10. MUPIROCIN. [Concomitant]
     Active Substance: MUPIROCIN
  11. ACETYLCYSTEINE. [Concomitant]
     Active Substance: ACETYLCYSTEINE
  12. PANTOPRAZOLE [Concomitant]
     Active Substance: PANTOPRAZOLE
  13. CALCITONIN [Concomitant]
     Active Substance: CALCITONIN
  14. GAMUNEX?C [Suspect]
     Active Substance: HUMAN IMMUNOGLOBULIN G
     Dosage: 5 GRAM
     Dates: start: 20210426
  15. ACETAMINOPHEN. [Concomitant]
     Active Substance: ACETAMINOPHEN
     Indication: PREMEDICATION
     Dosage: 650 MILLIGRAM
     Route: 048
     Dates: start: 20210514
  16. NORMAL SALINE [Concomitant]
     Active Substance: SODIUM CHLORIDE
     Dosage: 500 MILLILITER
     Route: 042
     Dates: start: 20210416
  17. HUMALOG MIX75/25 [Concomitant]
     Active Substance: INSULIN LISPRO
  18. ONDANSETRON [Concomitant]
     Active Substance: ONDANSETRON
  19. GAMUNEX?C [Suspect]
     Active Substance: HUMAN IMMUNOGLOBULIN G
     Indication: POLYMYOSITIS
     Dosage: 30 GRAM, SINGLE
     Route: 042
     Dates: start: 20210514, end: 20210514
  20. DIPHENHYDRAMINE. [Concomitant]
     Active Substance: DIPHENHYDRAMINE
     Dosage: 25 MILLIGRAM
     Route: 048
     Dates: start: 20210416
  21. DICLOFENAC [Concomitant]
     Active Substance: DICLOFENAC
  22. TUMS [Concomitant]
     Active Substance: CALCIUM CARBONATE
  23. VITAMIN D 2000 [Concomitant]
     Active Substance: VITAMIN D NOS
  24. NORMAL SALINE [Concomitant]
     Active Substance: SODIUM CHLORIDE
     Indication: PREMEDICATION
     Dosage: 500 MILLILITER
     Route: 042
     Dates: start: 20210514
  25. METHOTREXATE. [Concomitant]
     Active Substance: METHOTREXATE
  26. MULTIVITAMINUM [Concomitant]
     Active Substance: VITAMINS
  27. FOLIC ACID. [Concomitant]
     Active Substance: FOLIC ACID

REACTIONS (4)
  - Pruritus [Recovered/Resolved]
  - Rash pruritic [Recovering/Resolving]
  - Urticaria [Recovered/Resolved]
  - Rash erythematous [Recovering/Resolving]

NARRATIVE: CASE EVENT DATE: 20210416
